FAERS Safety Report 7534719-0 (Version None)
Quarter: 2011Q2

REPORT INFORMATION
  Report Type: 
  Country: None (occurrence: None)
  Receive Date: 20110609
  Receipt Date: 20110206
  Transmission Date: 20111010
  Serious: Yes (Other)
  Sender: FDA-Public Use
  Company Number: PHHY2011US46349

PATIENT

DRUGS (1)
  1. LOTREL [Suspect]

REACTIONS (1)
  - ACCIDENTAL EXPOSURE [None]
